FAERS Safety Report 25980647 (Version 4)
Quarter: 2025Q4

REPORT INFORMATION
  Report Type: Spontaneous
  Country: US (occurrence: US)
  Receive Date: 20251030
  Receipt Date: 20251208
  Transmission Date: 20260119
  Serious: No
  Sender: PFIZER
  Company Number: US-PFIZER INC-202500022350

PATIENT
  Age: 1 Year
  Sex: Female
  Weight: 9.524 kg

DRUGS (4)
  1. GENOTROPIN [Suspect]
     Active Substance: SOMATROPIN
     Indication: Short stature
     Dosage: 0.2 MG, ALTERNATE DAY(ALTERNATING WITH 0.3 MG)
  2. GENOTROPIN [Suspect]
     Active Substance: SOMATROPIN
     Indication: Prader-Willi syndrome
     Dosage: 0.3 MG, ALTERNATE DAY(ALTERNATING WITH 0.2 MG)
  3. GENOTROPIN [Suspect]
     Active Substance: SOMATROPIN
     Dosage: 0.4 MG, ALTERNATE DAY(ALTERNATING WITH 0.5MG)
  4. GENOTROPIN [Suspect]
     Active Substance: SOMATROPIN
     Dosage: 0.5 MG, ALTERNATE DAY (ALTERNATING WITH 0.4 MG)

REACTIONS (2)
  - Drug dose omission by device [Unknown]
  - Device leakage [Unknown]
